FAERS Safety Report 5494819-6 (Version None)
Quarter: 2007Q4

REPORT INFORMATION
  Report Type: 
  Country: None (occurrence: None)
  Receive Date: 20071015
  Receipt Date: 20060814
  Transmission Date: 20080405
  Serious: Yes (Other)
  Sender: FDA-Public Use
  Company Number: S06-USA-03231-01

PATIENT
  Age: 52 Year
  Sex: Male

DRUGS (5)
  1. LEXAPRO [Suspect]
     Indication: ANXIETY
     Dosage: 10 MG QD PO
     Route: 048
     Dates: start: 20060712, end: 20060714
  2. LEXAPRO [Suspect]
     Indication: DEPRESSION
     Dosage: 10 MG QD PO
     Route: 048
     Dates: start: 20060712, end: 20060714
  3. PEG-INTRON [Suspect]
     Indication: HEPATITIS C
     Dates: start: 20051028
  4. RIBAVIRIN [Suspect]
     Indication: HEPATITIS C
     Dates: start: 20051028
  5. XANAX [Interacting]

REACTIONS (2)
  - DEPRESSION [None]
  - SUICIDAL IDEATION [None]
